FAERS Safety Report 7909825-9 (Version None)
Quarter: 2011Q4

REPORT INFORMATION
  Report Type: 
  Country: None (occurrence: None)
  Receive Date: 20111111
  Receipt Date: 20111103
  Transmission Date: 20120403
  Serious: Yes (Congenital Anomaly)
  Sender: FDA-Public Use
  Company Number: FR-MERCK-1111FRA00005B1

PATIENT
  Age: 1 Day
  Sex: Male
  Weight: 5 kg

DRUGS (5)
  1. SINGULAIR [Suspect]
     Route: 064
     Dates: start: 20100820, end: 20110511
  2. AMINOPHYLLINE [Suspect]
     Route: 064
     Dates: start: 20100820, end: 20110511
  3. FORMOTEROL FUMARATE [Suspect]
     Route: 064
     Dates: start: 20100820, end: 20110511
  4. LEVOCETIRIZINE DIHYCHLORIDE [Suspect]
     Route: 064
     Dates: start: 20100820, end: 20110511
  5. TERBUTALINE SULFATE [Suspect]
     Route: 064
     Dates: start: 20100820, end: 20110511

REACTIONS (2)
  - CRANIOSYNOSTOSIS [None]
  - EXOPHTHALMOS CONGENITAL [None]
